FAERS Safety Report 8129909-2 (Version None)
Quarter: 2012Q1

REPORT INFORMATION
  Report Type: 
  Country: None (occurrence: None)
  Receive Date: 20120103
  Receipt Date: 20111118
  Transmission Date: 20120608
  Serious: No
  Sender: FDA-Public Use
  Company Number: AE-2011-003738

PATIENT
  Age: 59 Year
  Sex: Male
  Weight: 75.7507 kg

DRUGS (4)
  1. RIBAVIRIN [Concomitant]
  2. PEGINTERFERON ALFA-2B [Concomitant]
  3. INCIVEK [Suspect]
     Dosage: 2250 MG (750 MG, 1 IN 8 HR), ORAL
     Route: 048
     Dates: start: 20110910
  4. AMBIEN [Concomitant]

REACTIONS (1)
  - DIARRHOEA [None]
